FAERS Safety Report 12779382 (Version 2)
Quarter: 2016Q4

REPORT INFORMATION
  Report Type: Spontaneous
  Country: GB (occurrence: GB)
  Receive Date: 20160926
  Receipt Date: 20161010
  Transmission Date: 20170207
  Serious: Yes (Disabling)
  Sender: FDA-Public Use
  Company Number: GB-AUROBINDO-AUR-APL-2016-11634

PATIENT
  Age: 8 Year
  Sex: Male
  Weight: 32 kg

DRUGS (6)
  1. PIRITON [Suspect]
     Active Substance: CHLORPHENIRAMINE MALEATE
     Indication: ECZEMA
  2. CETIRIZINE [Suspect]
     Active Substance: CETIRIZINE HYDROCHLORIDE
     Indication: ECZEMA
  3. AVAMYS [Concomitant]
     Active Substance: FLUTICASONE FUROATE
     Indication: PRODUCT USED FOR UNKNOWN INDICATION
     Dosage: UNK
     Route: 045
  4. PIRITON [Suspect]
     Active Substance: CHLORPHENIRAMINE MALEATE
     Indication: HYPERSENSITIVITY
     Dosage: 5 ML, ONCE DAILY (QD)
     Route: 048
     Dates: start: 20120102, end: 20160831
  5. AVAMYS [Concomitant]
     Active Substance: FLUTICASONE FUROATE
     Indication: PRODUCT USED FOR UNKNOWN INDICATION
     Route: 045
  6. CETIRIZINE [Suspect]
     Active Substance: CETIRIZINE HYDROCHLORIDE
     Indication: HYPERSENSITIVITY
     Dosage: 5 ML, ONCE A DAY
     Route: 048
     Dates: start: 20120201, end: 20160831

REACTIONS (2)
  - Arnold-Chiari malformation [Recovered/Resolved]
  - Headache [Unknown]
